FAERS Safety Report 19096769 (Version 1)
Quarter: 2021Q2

REPORT INFORMATION
  Report Type: Spontaneous
  Country: US (occurrence: US)
  Receive Date: 20210405
  Receipt Date: 20210405
  Transmission Date: 20210717
  Serious: No
  Sender: FDA-Public Use
  Company Number: None

PATIENT
  Age: 61 Year
  Sex: Female
  Weight: 104 kg

DRUGS (21)
  1. ACYCLOVIR. [Concomitant]
     Active Substance: ACYCLOVIR
  2. GABAPENTIN. [Concomitant]
     Active Substance: GABAPENTIN
  3. LIVALO [Concomitant]
     Active Substance: PITAVASTATIN CALCIUM
  4. METAXALONE. [Concomitant]
     Active Substance: METAXALONE
  5. VALACYCLOVIR [Concomitant]
     Active Substance: VALACYCLOVIR HYDROCHLORIDE
  6. DUPIXENT [Suspect]
     Active Substance: DUPILUMAB
     Indication: DRUG THERAPY
     Dosage: ?          OTHER FREQUENCY:EVERY TWO WEEKS;?
     Route: 058
     Dates: start: 20210225, end: 20210401
  7. COENZYME Q10 [Concomitant]
     Active Substance: DIETARY SUPPLEMENT\UBIDECARENONE
  8. BUSPIRONE [Concomitant]
     Active Substance: BUSPIRONE HYDROCHLORIDE
  9. IRON [Concomitant]
     Active Substance: IRON
  10. NIFEDIPINE. [Concomitant]
     Active Substance: NIFEDIPINE
  11. DICLOFENAC 1% TOPICAL GEL [Concomitant]
  12. FAMOTIDINE. [Concomitant]
     Active Substance: FAMOTIDINE
  13. SYNTHROID [Concomitant]
     Active Substance: LEVOTHYROXINE SODIUM
  14. POTASSIUM [Concomitant]
     Active Substance: POTASSIUM
  15. ASPIRIN. [Concomitant]
     Active Substance: ASPIRIN
  16. MONTELUKAST [Concomitant]
     Active Substance: MONTELUKAST SODIUM
  17. OXYCODONE?ACETAMINOPHEN [Concomitant]
     Active Substance: ACETAMINOPHEN\OXYCODONE HYDROCHLORIDE
  18. ZOLPIDEM [Concomitant]
     Active Substance: ZOLPIDEM TARTRATE
  19. DULOXETINE. [Concomitant]
     Active Substance: DULOXETINE
  20. PROAIR HFA [Concomitant]
     Active Substance: ALBUTEROL SULFATE
  21. MIRALAX [Concomitant]
     Active Substance: POLYETHYLENE GLYCOL 3350

REACTIONS (9)
  - Headache [None]
  - Rash [None]
  - Rash macular [None]
  - Night sweats [None]
  - Malaise [None]
  - Chills [None]
  - Chest discomfort [None]
  - Cold sweat [None]
  - Flushing [None]

NARRATIVE: CASE EVENT DATE: 20210401
